FAERS Safety Report 16235112 (Version 1)
Quarter: 2019Q2

REPORT INFORMATION
  Report Type: Spontaneous
  Country: MX (occurrence: MX)
  Receive Date: 20190424
  Receipt Date: 20190424
  Transmission Date: 20190711
  Serious: Yes (Hospitalization)
  Sender: FDA-Public Use
  Company Number: MX-NOVOPROD-658631

PATIENT
  Age: 73 Year
  Sex: Male
  Weight: 73 kg

DRUGS (6)
  1. COLCHICINE. [Concomitant]
     Active Substance: COLCHICINE
     Indication: HEPATITIS C
     Dosage: FROM MONDAT TO FRIDAY
     Route: 048
     Dates: start: 2000
  2. FOLIC ACID. [Concomitant]
     Active Substance: FOLIC ACID
     Indication: HEPATITIS C
     Dosage: 5 MG, QD
     Route: 048
     Dates: start: 2000
  3. CICLOSPORINE [Concomitant]
     Active Substance: CYCLOSPORINE
     Indication: SEBORRHOEIC DERMATITIS
     Dosage: MONDAY. WDNESDAY AND FRIDAY
     Route: 048
     Dates: start: 2016
  4. NOVOEIGHT [Suspect]
     Active Substance: ANTIHEMOPHILIC FACTOR, HUMAN RECOMBINANT
     Indication: FACTOR VIII DEFICIENCY
     Dosage: 1500 IU, BIW
     Route: 042
     Dates: start: 201701
  5. IRBESARTAN. [Concomitant]
     Active Substance: IRBESARTAN
     Indication: HYPERTENSION
     Dosage: 150 MG, QD (HALF TABLET EACH 12 HOURS)
     Route: 048
     Dates: start: 201702
  6. NOVOEIGHT [Suspect]
     Active Substance: ANTIHEMOPHILIC FACTOR, HUMAN RECOMBINANT
     Dosage: 5000 IU
     Route: 042
     Dates: start: 20190220

REACTIONS (6)
  - Mouth swelling [Recovered/Resolved]
  - Mouth haemorrhage [Recovered/Resolved]
  - Internal haemorrhage [Recovered/Resolved]
  - Muscle strain [Recovered/Resolved]
  - Blood urine present [Recovered/Resolved]
  - Product availability issue [Unknown]

NARRATIVE: CASE EVENT DATE: 20190219
